FAERS Safety Report 4373430-4 (Version None)
Quarter: 2004Q2

REPORT INFORMATION
  Report Type: 
  Country: None (occurrence: None)
  Receive Date: 20040603
  Receipt Date: 20040525
  Transmission Date: 20050107
  Serious: Yes (Death, Other)
  Sender: FDA-Public Use
  Company Number: 2004215713LB

PATIENT
  Sex: Female
  Weight: 0.7 kg

DRUGS (7)
  1. DELTASONE [Suspect]
     Indication: THROMBOCYTOPENIC PURPURA
     Dosage: 2 MG/KG
  2. GAMMAGLOBULIN (IMMUNOLGLOBULIN HUMAN NORMAL) SOLUTION, STERILE [Suspect]
     Indication: THROMBOCYTOPENIC PURPURA
     Dosage: IV
     Route: 042
  3. SOLU-MEDROL [Suspect]
     Indication: THROMBOTIC THROMBOCYTOPENIC PURPURA
     Dosage: SEE IMAGE
     Route: 042
  4. ASPIRIN [Suspect]
     Indication: THROMBOTIC THROMBOCYTOPENIC PURPURA
  5. LMW HEPARIN (HEPARIN) [Suspect]
     Indication: THROMBOTIC THROMBOCYTOPENIC PURPURA
  6. RED BLOOD CELLS [Concomitant]
  7. PLATELETS [Concomitant]

REACTIONS (7)
  - APGAR SCORE LOW [None]
  - CAESAREAN SECTION [None]
  - DEATH NEONATAL [None]
  - DRUG EXPOSURE DURING PREGNANCY [None]
  - FOETAL DISORDER [None]
  - FOETAL GROWTH RETARDATION [None]
  - THROMBOSIS [None]
